FAERS Safety Report 4987757-6 (Version None)
Quarter: 2006Q2

REPORT INFORMATION
  Report Type: 
  Country: None (occurrence: None)
  Receive Date: 20060428
  Receipt Date: 20060428
  Transmission Date: 20061013
  Serious: Yes (Other)
  Sender: FDA-Public Use
  Company Number: None

PATIENT
  Sex: Male
  Weight: 173 kg

DRUGS (5)
  1. HALOPERIDOL [Suspect]
     Indication: AGITATION
     Dosage: 2 MG ONCE IV
     Route: 042
     Dates: start: 20060329, end: 20060329
  2. REGULAR INSULIN [Concomitant]
  3. RANITIDINE [Concomitant]
  4. ENOXAPARIN SODIUM [Concomitant]
  5. HYDROCORTISONE [Concomitant]

REACTIONS (7)
  - CONFUSIONAL STATE [None]
  - DISORIENTATION [None]
  - LOSS OF CONSCIOUSNESS [None]
  - MIOSIS [None]
  - OXYGEN SATURATION DECREASED [None]
  - PUPIL FIXED [None]
  - UNRESPONSIVE TO PAIN STIMULI [None]
